FAERS Safety Report 6449548-9 (Version None)
Quarter: 2009Q4

REPORT INFORMATION
  Report Type: 
  Country: None (occurrence: None)
  Receive Date: 20091120
  Receipt Date: 20091106
  Transmission Date: 20100525
  Serious: Yes (Life-Threatening)
  Sender: FDA-Public Use
  Company Number: ES-GENENTECH-271962

PATIENT
  Sex: Female

DRUGS (5)
  1. AVASTIN [Suspect]
     Indication: RECTAL CANCER
     Dosage: 525 MG, Q3W
     Route: 042
     Dates: start: 20071026, end: 20080305
  2. ERLOTINIB [Suspect]
     Indication: RECTAL CANCER
     Dosage: 150 MG, UNK
     Route: 048
     Dates: start: 20080305, end: 20080311
  3. CAPECITABINE [Suspect]
     Indication: RECTAL CANCER
  4. IBUPROFEN [Concomitant]
     Indication: DRUG USE FOR UNKNOWN INDICATION
     Dosage: UNK
     Dates: start: 20071001
  5. PARACETAMOL [Concomitant]
     Indication: DRUG USE FOR UNKNOWN INDICATION
     Dosage: UNK
     Dates: start: 20071001

REACTIONS (1)
  - COLITIS ISCHAEMIC [None]
